FAERS Safety Report 4984633-X (Version None)
Quarter: 2006Q2

REPORT INFORMATION
  Report Type: 
  Country: None (occurrence: None)
  Receive Date: 20060419
  Receipt Date: 20060405
  Transmission Date: 20061013
  Serious: Yes (Other)
  Sender: FDA-Public Use
  Company Number: FR-2006-002938

PATIENT
  Age: 56 Year
  Sex: Male
  Weight: 62 kg

DRUGS (1)
  1. CAMPATH [Suspect]
     Indication: CHRONIC LYMPHOCYTIC LEUKAEMIA
     Dosage: 10 MG, CYCLES, INTRAVENOUS
     Route: 042
     Dates: start: 20050315, end: 20051015

REACTIONS (1)
  - CHOLANGITIS SCLEROSING [None]
